FAERS Safety Report 8985443 (Version 1)
Quarter: 2012Q4

REPORT INFORMATION
  Report Type: 
  Country: US (occurrence: US)
  Receive Date: 20121226
  Receipt Date: 20121226
  Transmission Date: 20130627
  Serious: Yes (Hospitalization)
  Sender: FDA-Public Use
  Company Number: US-JNJFOC-20121209030

PATIENT
  Age: 62 Year
  Sex: Female
  Weight: 45.36 kg

DRUGS (2)
  1. XARELTO [Suspect]
     Indication: CEREBROVASCULAR ACCIDENT PROPHYLAXIS
     Dosage: about 2 months ago
     Route: 048
     Dates: start: 2012
  2. XARELTO [Suspect]
     Indication: ATRIAL FIBRILLATION
     Dosage: about 2 months ago
     Route: 048
     Dates: start: 2012

REACTIONS (1)
  - Deep vein thrombosis [Unknown]
